FAERS Safety Report 4350994-8 (Version None)
Quarter: 2004Q2

REPORT INFORMATION
  Report Type: 
  Country: None (occurrence: None)
  Receive Date: 20040427
  Receipt Date: 20020326
  Transmission Date: 20050107
  Serious: Yes (Other)
  Sender: FDA-Public Use
  Company Number: 2004IM000224

PATIENT
  Age: 49 Year
  Sex: Female

DRUGS (2)
  1. ADVAFERON (A643_INTERFERON ALFACON-1) [Suspect]
     Indication: HEPATITIS C
     Dosage: 18 MU; QD; SUBCUTANEOUS
     Route: 058
     Dates: start: 20020318
  2. REBAMIPIDE [Concomitant]

REACTIONS (9)
  - CHILLS [None]
  - DIARRHOEA [None]
  - EPISTAXIS [None]
  - GINGIVAL BLEEDING [None]
  - MALAISE [None]
  - PHOTOPSIA [None]
  - PLATELET COUNT DECREASED [None]
  - PYREXIA [None]
  - WHITE BLOOD CELL COUNT DECREASED [None]
